FAERS Safety Report 13052889 (Version 3)
Quarter: 2017Q1

REPORT INFORMATION
  Report Type: Report from Study
  Country: US (occurrence: US)
  Receive Date: 20161221
  Receipt Date: 20170112
  Transmission Date: 20170428
  Serious: Yes (Death)
  Sender: FDA-Public Use
  Company Number: US-ROCHE-1870535

PATIENT
  Age: 86 Year
  Sex: Male

DRUGS (30)
  1. AVASTIN [Suspect]
     Active Substance: BEVACIZUMAB
     Dosage: RIGHT EYE
     Route: 050
     Dates: start: 20121213
  2. AVASTIN [Suspect]
     Active Substance: BEVACIZUMAB
     Dosage: RIGHT EYE
     Route: 050
     Dates: start: 20131230
  3. FOLBEE PLUS [Concomitant]
     Route: 048
  4. VITAMIN E [Concomitant]
     Active Substance: .ALPHA.-TOCOPHEROL
     Route: 048
     Dates: start: 20120604
  5. KEPPRA [Concomitant]
     Active Substance: LEVETIRACETAM
     Route: 048
     Dates: start: 20150122
  6. FUROSEMIDE. [Concomitant]
     Active Substance: FUROSEMIDE
     Dosage: EVERY EVENING
     Route: 048
     Dates: start: 20160107
  7. GABAPENTIN. [Concomitant]
     Active Substance: GABAPENTIN
     Dosage: BEDTIME
     Route: 048
  8. NOVOLOG [Concomitant]
     Active Substance: INSULIN ASPART
     Dosage: 100 UNITS/ML
     Route: 065
     Dates: start: 20160107
  9. FLOMAX [Concomitant]
     Active Substance: TAMSULOSIN HYDROCHLORIDE
     Route: 048
     Dates: start: 20150122
  10. GLUCAGON. [Concomitant]
     Active Substance: GLUCAGON
     Route: 065
     Dates: start: 20160107
  11. LUCENTIS [Suspect]
     Active Substance: RANIBIZUMAB
     Indication: NEOVASCULAR AGE-RELATED MACULAR DEGENERATION
     Route: 050
  12. AVASTIN [Suspect]
     Active Substance: BEVACIZUMAB
     Dosage: RIGHT EYE
     Route: 050
     Dates: start: 20121018
  13. ALLOPURINOL. [Concomitant]
     Active Substance: ALLOPURINOL
     Route: 048
     Dates: start: 20120604
  14. LANTUS [Concomitant]
     Active Substance: INSULIN GLARGINE
     Dosage: 40 UNITS/ML
     Route: 058
     Dates: start: 20140528
  15. XARELTO [Concomitant]
     Active Substance: RIVAROXABAN
     Route: 048
     Dates: start: 20140528
  16. AVASTIN [Suspect]
     Active Substance: BEVACIZUMAB
     Dosage: RIGHT EYE
     Route: 050
     Dates: start: 20120806
  17. AVASTIN [Suspect]
     Active Substance: BEVACIZUMAB
     Dosage: RIGHT EYE
     Route: 050
     Dates: start: 20130221
  18. VITAMIN B COMPLEX [Concomitant]
     Active Substance: CYANOCOBALAMIN\DEXPANTHENOL\NIACINAMIDE\PYRIDOXINE HYDROCHLORIDE\RIBOFLAVIN 5^-PHOSPHATE SODIUM\THIAMINE HYDROCHLORIDE\VITAMIN B COMPLEX
     Route: 048
  19. VITAMIN D3 [Concomitant]
     Active Substance: CHOLECALCIFEROL
     Route: 048
  20. PRANDIN (UNITED STATES) [Concomitant]
     Route: 048
     Dates: start: 20150122
  21. AVASTIN [Suspect]
     Active Substance: BEVACIZUMAB
     Indication: NEOVASCULAR AGE-RELATED MACULAR DEGENERATION
     Dosage: RIGHT EYE
     Route: 050
     Dates: start: 20120604
  22. MASTISOL [Concomitant]
     Active Substance: DEVICE
  23. ASPIRIN. [Concomitant]
     Active Substance: ASPIRIN
     Route: 065
     Dates: start: 20120604
  24. TAMSULOSIN [Concomitant]
     Active Substance: TAMSULOSIN
     Route: 048
     Dates: start: 20160428
  25. AVASTIN [Suspect]
     Active Substance: BEVACIZUMAB
     Dosage: RIGHT EYE
     Route: 050
     Dates: start: 20120706
  26. OMEPRAZOLE. [Concomitant]
     Active Substance: OMEPRAZOLE
     Route: 048
     Dates: start: 20120604
  27. ERYTHROMYCIN. [Concomitant]
     Active Substance: ERYTHROMYCIN
     Route: 065
     Dates: start: 20140528
  28. NITROGLYCERIN. [Concomitant]
     Active Substance: NITROGLYCERIN
     Route: 060
     Dates: start: 20150122
  29. AVASTIN [Suspect]
     Active Substance: BEVACIZUMAB
     Dosage: RIGHT EYE
     Route: 050
     Dates: start: 20120906
  30. LOMOTIL (UNITED STATES) [Concomitant]
     Dosage: 2.5/0.025MG AS NEEDED
     Route: 048
     Dates: start: 20160107

REACTIONS (3)
  - Subretinal fibrosis [Unknown]
  - Death [Fatal]
  - Off label use [Fatal]

NARRATIVE: CASE EVENT DATE: 20160923
